FAERS Safety Report 10398532 (Version 2)
Quarter: 2014Q3

REPORT INFORMATION
  Report Type: Spontaneous
  Country: JP (occurrence: JP)
  Receive Date: 20140821
  Receipt Date: 20140902
  Transmission Date: 20150326
  Serious: Yes (Other)
  Sender: FDA-Public Use
  Company Number: PHHY2014JP102808

PATIENT

DRUGS (3)
  1. PACLITAXEL. [Concomitant]
     Active Substance: PACLITAXEL
     Route: 041
  2. BEVACIZUMAB [Concomitant]
     Active Substance: BEVACIZUMAB
     Route: 041
  3. ZOLEDRONIC ACID [Suspect]
     Active Substance: ZOLEDRONIC ACID
     Indication: BREAST CANCER RECURRENT
     Route: 041

REACTIONS (1)
  - Osteonecrosis of jaw [Unknown]
